FAERS Safety Report 11771705 (Version 1)
Quarter: 2015Q4

REPORT INFORMATION
  Report Type: Spontaneous
  Country: US (occurrence: None)
  Receive Date: 20151123
  Receipt Date: 20151123
  Transmission Date: 20160304
  Serious: Yes (Hospitalization, Disabling)
  Sender: FDA-Public Use
  Company Number: None

PATIENT
  Age: 63 Year
  Sex: Male

DRUGS (1)
  1. AMIODARONE [Suspect]
     Active Substance: AMIODARONE
     Indication: ARRHYTHMIA
     Dosage: 200 MG X 6
     Route: 048
     Dates: start: 20150706, end: 20151023

REACTIONS (7)
  - Movement disorder [None]
  - Social avoidant behaviour [None]
  - Lupus-like syndrome [None]
  - Pancreatic mass [None]
  - Abasia [None]
  - Pancreatic cyst [None]
  - Activities of daily living impaired [None]

NARRATIVE: CASE EVENT DATE: 20151117
